FAERS Safety Report 23125022 (Version 1)
Quarter: 2023Q4

REPORT INFORMATION
  Report Type: Spontaneous
  Country: US (occurrence: US)
  Receive Date: 20231030
  Receipt Date: 20231030
  Transmission Date: 20240110
  Serious: No
  Sender: FDA-Public Use
  Company Number: US-EPIHEALTH-2023-US-011734

PATIENT
  Sex: Female

DRUGS (3)
  1. RHOFADE [Suspect]
     Active Substance: OXYMETAZOLINE HYDROCHLORIDE
     Indication: Product used for unknown indication
     Route: 061
     Dates: start: 20230430, end: 20230503
  2. PROGESTERONE [Concomitant]
     Active Substance: PROGESTERONE
     Dosage: 2.5MG ORALLY DAILY
     Route: 048
  3. VITAMINS [Concomitant]
     Active Substance: VITAMINS
     Dosage: DAILY
     Route: 048

REACTIONS (2)
  - Purpura [Unknown]
  - Rash erythematous [Unknown]

NARRATIVE: CASE EVENT DATE: 20230430
